FAERS Safety Report 14967571 (Version 2)
Quarter: 2018Q3

REPORT INFORMATION
  Report Type: Report from Study
  Country: CR (occurrence: CR)
  Receive Date: 20180604
  Receipt Date: 20180705
  Transmission Date: 20181010
  Serious: Yes (Other)
  Sender: FDA-Public Use
  Company Number: PHHY2018CR013311

PATIENT
  Age: 81 Year
  Sex: Female

DRUGS (1)
  1. EXFORGE HCT [Suspect]
     Active Substance: AMLODIPINE BESYLATE\HYDROCHLOROTHIAZIDE\VALSARTAN
     Indication: PRODUCT USED FOR UNKNOWN INDICATION
     Dosage: 1 DF (AMLODIPINE 10 MG, HYDROCHLOROTHIAZIDE 25 MG AND VALSARTAN 320 MG), UNK
     Route: 065

REACTIONS (5)
  - Diabetes mellitus [Unknown]
  - Peripheral swelling [Recovered/Resolved]
  - Hypertension [Unknown]
  - Angina pectoris [Unknown]
  - Infarction [Unknown]
